FAERS Safety Report 6946885-6 (Version None)
Quarter: 2010Q3

REPORT INFORMATION
  Report Type: 
  Country: None (occurrence: None)
  Receive Date: 20100827
  Receipt Date: 20090817
  Transmission Date: 20110219
  Serious: No
  Sender: FDA-Public Use
  Company Number: US-ABBOTT-09P-163-0592721-00

PATIENT
  Age: 62 Year
  Sex: Female

DRUGS (7)
  1. NIASPAN [Suspect]
     Indication: BLOOD CHOLESTEROL INCREASED
     Dates: start: 20090816
  2. PREVACID [Concomitant]
     Indication: GASTROOESOPHAGEAL REFLUX DISEASE
     Dosage: UNKNOWN
     Route: 048
  3. MULTI-VITAMINS [Concomitant]
     Indication: VITAMIN SUPPLEMENTATION
     Dosage: UNKNOWN
  4. VITAMIN D [Concomitant]
     Indication: VITAMIN SUPPLEMENTATION
  5. ASPIRIN [Concomitant]
     Indication: PROPHYLAXIS
     Dates: start: 20090816
  6. ALINE [Concomitant]
     Indication: ABDOMINAL DISCOMFORT
     Dosage: UNKNOWN
     Route: 048
  7. NASAL SPRAY [Concomitant]
     Indication: ALLERGIC SINUSITIS
     Dosage: UNKNOWN

REACTIONS (3)
  - DIZZINESS [None]
  - FLUSHING [None]
  - VOMITING [None]
